FAERS Safety Report 6910984-5 (Version None)
Quarter: 2010Q3

REPORT INFORMATION
  Report Type: 
  Country: None (occurrence: None)
  Receive Date: 20100806
  Receipt Date: 20100730
  Transmission Date: 20110219
  Serious: Yes (Hospitalization)
  Sender: FDA-Public Use
  Company Number: A0866442A

PATIENT
  Age: 63 Year
  Sex: Male
  Weight: 96.8 kg

DRUGS (3)
  1. AVANDIA [Suspect]
     Dosage: 4MG PER DAY
     Route: 048
     Dates: start: 20051103, end: 20070514
  2. NEURONTIN [Concomitant]
  3. LISINOPRIL [Concomitant]

REACTIONS (1)
  - MYOCARDIAL INFARCTION [None]
